FAERS Safety Report 16916845 (Version 2)
Quarter: 2021Q2

REPORT INFORMATION
  Report Type: Report from Study
  Country: DE (occurrence: DE)
  Receive Date: 20191015
  Receipt Date: 20210525
  Transmission Date: 20210716
  Serious: Yes (Death, Life-Threatening, Hospitalization, Other)
  Sender: FDA-Public Use
  Company Number: DE-AUROBINDO-AUR-APL-2017-06751

PATIENT
  Age: 74 Year
  Sex: Male

DRUGS (2)
  1. METFORMIN [Suspect]
     Active Substance: METFORMIN HYDROCHLORIDE
     Dosage: 2 GRAM, ONCE A DAY
     Route: 065
  2. METFORMIN [Suspect]
     Active Substance: METFORMIN HYDROCHLORIDE
     Indication: DIABETES MELLITUS
     Dosage: 1.7 GRAM, ONCE A DAY (DAILY DOSE TEXT :1.7 G/DAY)
     Route: 065

REACTIONS (8)
  - Lactic acidosis [Fatal]
  - Renal impairment [Fatal]
  - Renal failure [Fatal]
  - Multiple organ dysfunction syndrome [Fatal]
  - Cardiogenic shock [Fatal]
  - Shock [Fatal]
  - Dyspnoea [Fatal]
  - Visual impairment [Fatal]
